FAERS Safety Report 23812946 (Version 2)
Quarter: 2024Q2

REPORT INFORMATION
  Report Type: Spontaneous
  Country: AR (occurrence: AR)
  Receive Date: 20240503
  Receipt Date: 20240521
  Transmission Date: 20240715
  Serious: Yes (Other)
  Sender: FDA-Public Use
  Company Number: AR-002147023-NVSC2022AR241624

PATIENT
  Age: 41 Year
  Sex: Female

DRUGS (4)
  1. KISQALI [Suspect]
     Active Substance: RIBOCICLIB
     Dosage: 200 MG, TID
     Route: 048
     Dates: start: 20220930
  2. KISQALI [Suspect]
     Active Substance: RIBOCICLIB
     Dosage: 3 DOSAGE FORM, QD (3 UNITS) FOR 21 DAYS, AND THEN SHE HAS 1 WEEK OF REST
     Route: 048
     Dates: start: 20220930
  3. KISQALI [Suspect]
     Active Substance: RIBOCICLIB
     Indication: Breast cancer metastatic
     Dosage: 600 MG, QD
     Route: 048
     Dates: start: 20220930
  4. ZOLEDRONIC ACID [Suspect]
     Active Substance: ZOLEDRONIC ACID
     Indication: Product used for unknown indication
     Dosage: UNK
     Route: 065

REACTIONS (21)
  - Arrhythmia [Unknown]
  - Bone demineralisation [Unknown]
  - Trismus [Unknown]
  - Arthropathy [Unknown]
  - Palpitations [Unknown]
  - Influenza [Unknown]
  - Cancer pain [Unknown]
  - Tooth loss [Unknown]
  - Pelvic pain [Unknown]
  - Dengue fever [Recovered/Resolved]
  - Anaemia [Unknown]
  - Pyrexia [Recovered/Resolved]
  - Headache [Unknown]
  - Dizziness [Recovering/Resolving]
  - Pain [Unknown]
  - Back pain [Unknown]
  - Asthenia [Unknown]
  - Inappropriate schedule of product administration [Unknown]
  - Vertigo [Recovering/Resolving]
  - Decreased appetite [Recovered/Resolved]
  - Myalgia [Recovered/Resolved]

NARRATIVE: CASE EVENT DATE: 20230801
